FAERS Safety Report 17965109 (Version 1)
Quarter: 2020Q2

REPORT INFORMATION
  Report Type: Report from Study
  Country: None (occurrence: US)
  Receive Date: 20200630
  Receipt Date: 20200630
  Transmission Date: 20200714
  Serious: Yes (Other)
  Sender: FDA-Public Use
  Company Number: US-ABBVIE-20K-163-3460230-00

PATIENT
  Age: 60 Year
  Sex: Female

DRUGS (3)
  1. GAZYVA [Suspect]
     Active Substance: OBINUTUZUMAB
     Indication: PRODUCT USED FOR UNKNOWN INDICATION
     Route: 065
  2. VENCLEXTA [Suspect]
     Active Substance: VENETOCLAX
     Dosage: DOSE DECREASED
     Route: 048
     Dates: start: 20200506, end: 20200521
  3. VENCLEXTA [Suspect]
     Active Substance: VENETOCLAX
     Indication: CHRONIC LYMPHOCYTIC LEUKAEMIA
     Route: 048
     Dates: start: 20161209

REACTIONS (15)
  - Tooth resorption [Unknown]
  - Tooth infection [Unknown]
  - Decreased appetite [Recovered/Resolved]
  - Platelet count decreased [Recovering/Resolving]
  - Lymphocyte count decreased [Unknown]
  - Weight decreased [Recovered/Resolved]
  - White blood cell count decreased [Recovering/Resolving]
  - Malaise [Recovered/Resolved]
  - Neutrophil count decreased [Recovering/Resolving]
  - Deafness [Recovered/Resolved]
  - Eructation [Recovered/Resolved]
  - Tonsillar exudate [Recovered/Resolved]
  - Swelling [Recovered/Resolved]
  - Monocyte count decreased [Recovering/Resolving]
  - Fatigue [Recovered/Resolved]

NARRATIVE: CASE EVENT DATE: 2018
